FAERS Safety Report 9498217 (Version 1)
Quarter: 2013Q3

REPORT INFORMATION
  Report Type: Spontaneous
  Country: US (occurrence: US)
  Receive Date: 20130904
  Receipt Date: 20130904
  Transmission Date: 20140515
  Serious: Yes (Other)
  Sender: FDA-Public Use
  Company Number: US-COVIDIEN/TYCO HEALTHCARE/MALLINCKRODT-T201304223

PATIENT
  Age: 33 Year
  Sex: Female

DRUGS (3)
  1. GABLOFEN [Suspect]
     Indication: MUSCLE SPASTICITY
     Dosage: 30 MCG/DAY
     Route: 037
  2. GABLOFEN [Suspect]
     Dosage: 40.07 MCG/DAY
     Route: 037
  3. GABLOFEN [Suspect]
     Dosage: UNK

REACTIONS (6)
  - Dysstasia [Unknown]
  - Hypotonia [Unknown]
  - Urinary tract infection [Unknown]
  - Muscle tightness [Unknown]
  - Drug effect increased [Unknown]
  - Drug effect decreased [Unknown]
